FAERS Safety Report 23968255 (Version 1)
Quarter: 2024Q2

REPORT INFORMATION
  Report Type: Spontaneous
  Country: US (occurrence: US)
  Receive Date: 20240612
  Receipt Date: 20240612
  Transmission Date: 20240717
  Serious: No
  Sender: FDA-Public Use
  Company Number: US-PERRIGO-24US001902

PATIENT
  Sex: Male
  Weight: 78.005 kg

DRUGS (3)
  1. DICLOFENAC SODIUM [Suspect]
     Active Substance: DICLOFENAC\DICLOFENAC SODIUM
     Indication: Arthralgia
     Dosage: 2.25 INCH, QD
     Route: 061
  2. DICLOFENAC SODIUM [Suspect]
     Active Substance: DICLOFENAC\DICLOFENAC SODIUM
     Dosage: 2.25 IN, QD
     Route: 061
     Dates: start: 20240214
  3. ELIQUIS [Concomitant]
     Active Substance: APIXABAN
     Indication: Atrial fibrillation
     Dosage: UNKNOWN, UNKNOWN
     Route: 065

REACTIONS (1)
  - Expired product administered [Unknown]
